FAERS Safety Report 15547650 (Version 1)
Quarter: 2018Q4

REPORT INFORMATION
  Report Type: Spontaneous
  Country: TR (occurrence: TR)
  Receive Date: 20181024
  Receipt Date: 20181024
  Transmission Date: 20190205
  Serious: Yes (Hospitalization, Other)
  Sender: FDA-Public Use
  Company Number: TR-GILEAD-2018-0369275

PATIENT
  Age: 42 Year
  Sex: Male
  Weight: 75 kg

DRUGS (2)
  1. SOVALDI [Suspect]
     Active Substance: SOFOSBUVIR
     Indication: CHRONIC HEPATITIS C
     Dosage: UNK
     Route: 065
     Dates: start: 201805, end: 201805
  2. RIBAVIRIN. [Suspect]
     Active Substance: RIBAVIRIN
     Indication: CHRONIC HEPATITIS C
     Dosage: UNK
     Route: 065
     Dates: start: 201805, end: 201805

REACTIONS (8)
  - Alanine aminotransferase increased [Unknown]
  - Therapy cessation [Recovered/Resolved]
  - Oral disorder [Unknown]
  - Hepatic enzyme increased [Unknown]
  - Vomiting [Unknown]
  - Hepatitis [Not Recovered/Not Resolved]
  - Hepatitis C RNA positive [Not Recovered/Not Resolved]
  - Product supply issue [Recovered/Resolved]

NARRATIVE: CASE EVENT DATE: 2018
